FAERS Safety Report 15401271 (Version 1)
Quarter: 2018Q3

REPORT INFORMATION
  Report Type: Spontaneous
  Country: US (occurrence: US)
  Receive Date: 20180919
  Receipt Date: 20180919
  Transmission Date: 20181010
  Serious: No
  Sender: FDA-Public Use
  Company Number: US-SA-2018SA260347

PATIENT
  Age: 18 Year
  Sex: Male
  Weight: 49.89 kg

DRUGS (6)
  1. FLOVENT HFA [Concomitant]
     Active Substance: FLUTICASONE PROPIONATE
  2. PROVENTIL HFA [SALBUTAMOL] [Concomitant]
  3. DUPIXENT [Suspect]
     Active Substance: DUPILUMAB
     Indication: DERMATITIS ATOPIC
     Dosage: 1 DF, QOW
     Route: 058
     Dates: start: 201805
  4. EUCRISA [Concomitant]
     Active Substance: CRISABOROLE
  5. ACLOVATE [Concomitant]
     Active Substance: ALCLOMETASONE DIPROPIONATE
  6. ALLERGY RELIEF [CETIRIZINE HYDROCHLORIDE] [Concomitant]

REACTIONS (1)
  - Dermatitis [Not Recovered/Not Resolved]

NARRATIVE: CASE EVENT DATE: 2018
